FAERS Safety Report 5130327-X (Version None)
Quarter: 2006Q4

REPORT INFORMATION
  Report Type: 
  Country: None (occurrence: None)
  Receive Date: 20061013
  Receipt Date: 20060926
  Transmission Date: 20070319
  Serious: Yes (Other)
  Sender: FDA-Public Use
  Company Number: US200608004793

PATIENT
  Age: 66 Year
  Sex: Male

DRUGS (5)
  1. FORTEO [Suspect]
     Indication: OSTEOPOROSIS
     Dosage: 20 UG, DAILY (1/D),
     Dates: start: 20060201
  2. FORTEO [Concomitant]
  3. FORTEO [Concomitant]
  4. MULTIVITAMINS (ASCORBIC ACID, ERGOCALCIFEROL, FOLIC ACID, NICOTINAMIDE [Concomitant]
  5. INSULIN (INSULIN) [Concomitant]

REACTIONS (17)
  - BONE SCAN ABNORMAL [None]
  - HERNIA [None]
  - INFECTION [None]
  - INTERVERTEBRAL DISC DEGENERATION [None]
  - INTERVERTEBRAL DISC DISORDER [None]
  - INTERVERTEBRAL DISC DISPLACEMENT [None]
  - INTERVERTEBRAL DISC SPACE NARROWING [None]
  - METASTATIC NEOPLASM [None]
  - OEDEMA [None]
  - OSTEITIS [None]
  - OSTEONECROSIS [None]
  - PATHOLOGICAL FRACTURE [None]
  - PHARMACEUTICAL PRODUCT COMPLAINT [None]
  - POST PROCEDURAL COMPLICATION [None]
  - PUBIC RAMI FRACTURE [None]
  - SOFT TISSUE DISORDER [None]
  - SYNOVIAL DISORDER [None]
